FAERS Safety Report 25046122 (Version 7)
Quarter: 2025Q4

REPORT INFORMATION
  Report Type: Spontaneous
  Country: JP (occurrence: JP)
  Receive Date: 20250306
  Receipt Date: 20251203
  Transmission Date: 20260117
  Serious: Yes (Hospitalization, Other)
  Sender: MERCK SHARP & DOHME LLC
  Company Number: JP-MSD-M2024-51780

PATIENT
  Age: 8 Decade
  Sex: Male

DRUGS (6)
  1. KEYTRUDA [Suspect]
     Active Substance: PEMBROLIZUMAB
     Indication: Bile duct cancer stage IV
     Dosage: DOSE DESCRIPTION : 200 MILLIGRAM, Q3W?DAILY DOSE : 9.4 MILLIGRAM?REGIMEN DOSE : 200  MILLIGRAM
     Route: 041
     Dates: start: 202409, end: 2024
  2. KEYTRUDA [Suspect]
     Active Substance: PEMBROLIZUMAB
     Indication: Bile duct cancer stage IV
     Dosage: DOSE DESCRIPTION : 200 MILLIGRAM, Q3W?DAILY DOSE : 9.4 MILLIGRAM?REGIMEN DOSE : 200  MILLIGRAM
     Route: 041
     Dates: start: 2024, end: 202509
  3. GEMCITABINE [Concomitant]
     Active Substance: GEMCITABINE
     Dosage: DOSE DESCRIPTION : UNK
     Dates: start: 202409, end: 2024
  4. GEMCITABINE [Concomitant]
     Active Substance: GEMCITABINE
     Dosage: DOSE DESCRIPTION : UNK
     Dates: start: 2024, end: 202509
  5. CISPLATIN [Concomitant]
     Active Substance: CISPLATIN
     Dosage: DOSE DESCRIPTION : UNK
     Dates: start: 202409, end: 2024
  6. CISPLATIN [Concomitant]
     Active Substance: CISPLATIN
     Dosage: DOSE DESCRIPTION : UNK
     Dates: start: 2024, end: 2025

REACTIONS (4)
  - Malignant neoplasm progression [Unknown]
  - Activities of daily living decreased [Unknown]
  - Pyrexia [Recovered/Resolved]
  - Therapy partial responder [Not Recovered/Not Resolved]

NARRATIVE: CASE EVENT DATE: 20240101
